FAERS Safety Report 4962364-X (Version None)
Quarter: 2006Q2

REPORT INFORMATION
  Report Type: 
  Country: None (occurrence: None)
  Receive Date: 20060403
  Receipt Date: 20060403
  Transmission Date: 20061013
  Serious: No
  Sender: FDA-Public Use
  Company Number: None

PATIENT
  Sex: Male
  Weight: 86.1834 kg

DRUGS (7)
  1. PACLITAXEL [Suspect]
     Indication: SMALL CELL LUNG CANCER STAGE UNSPECIFIED
     Dosage: 350 MG Q21 D IV BOLUS
     Route: 040
     Dates: start: 20050825, end: 20050916
  2. ZANTAC [Concomitant]
  3. BENADRYL [Concomitant]
  4. ZOFRAN [Concomitant]
  5. DECADRON SRC [Concomitant]
  6. OMEPRAZOLE [Concomitant]
  7. WARFARIN [Concomitant]

REACTIONS (1)
  - UNEVALUABLE EVENT [None]
